FAERS Safety Report 26177391 (Version 1)
Quarter: 2025Q4

REPORT INFORMATION
  Report Type: Spontaneous
  Country: GB (occurrence: GB)
  Receive Date: 20251219
  Receipt Date: 20251219
  Transmission Date: 20260118
  Serious: Yes (Other)
  Sender: CHEPLAPHARM
  Company Number: None

PATIENT
  Sex: Female

DRUGS (1)
  1. ORLISTAT [Suspect]
     Active Substance: ORLISTAT

REACTIONS (5)
  - Headache [Unknown]
  - Confusional state [Unknown]
  - Palpitations [Unknown]
  - Asthenia [Unknown]
  - Ear discomfort [Unknown]
